FAERS Safety Report 4950749-7 (Version None)
Quarter: 2006Q1

REPORT INFORMATION
  Report Type: 
  Country: None (occurrence: None)
  Receive Date: 20060322
  Receipt Date: 20060317
  Transmission Date: 20060701
  Serious: Yes (Death)
  Sender: FDA-Public Use
  Company Number: JP-ROCHE-440839

PATIENT
  Age: 79 Year
  Sex: Female

DRUGS (3)
  1. PANALDINE [Suspect]
     Indication: CEREBRAL INFARCTION
     Route: 048
     Dates: start: 20060205, end: 20060209
  2. RADICUT [Suspect]
     Indication: CEREBRAL INFARCTION
     Route: 065
     Dates: start: 20060205
  3. ASPIRIN [Concomitant]
     Indication: CEREBRAL INFARCTION
     Route: 048
     Dates: start: 20060205

REACTIONS (2)
  - CEREBRAL HAEMORRHAGE [None]
  - HEPATIC FAILURE [None]
